FAERS Safety Report 6598126-X (Version None)
Quarter: 2010Q1

REPORT INFORMATION
  Report Type: 
  Country: None (occurrence: None)
  Receive Date: 20100224
  Receipt Date: 20050214
  Transmission Date: 20100710
  Serious: No
  Sender: FDA-Public Use
  Company Number: US-ALLERGAN-200501383

PATIENT
  Age: 72 Year
  Sex: Female

DRUGS (1)
  1. BOTOX [Suspect]
     Indication: BLEPHAROSPASM
     Route: 030
     Dates: start: 20050113

REACTIONS (2)
  - PHOTOSENSITIVITY REACTION [None]
  - VISUAL ACUITY REDUCED [None]
